FAERS Safety Report 9632577 (Version 1)
Quarter: 2013Q4

REPORT INFORMATION
  Report Type: Spontaneous
  Country: FR (occurrence: FR)
  Receive Date: 20131018
  Receipt Date: 20131018
  Transmission Date: 20140711
  Serious: Yes (Death, Hospitalization)
  Sender: FDA-Public Use
  Company Number: FR-ELI_LILLY_AND_COMPANY-FR201310004712

PATIENT
  Age: 66 Year
  Sex: Male

DRUGS (6)
  1. ALIMTA [Suspect]
     Indication: LUNG ADENOCARCINOMA
     Dosage: 950 MG, CYCLICAL
     Route: 042
     Dates: start: 20130313, end: 20130809
  2. CARBOPLATINE [Concomitant]
     Indication: LUNG ADENOCARCINOMA
     Dosage: 645 MG, CYCLICAL
     Dates: start: 20130315, end: 20130628
  3. SOLUMEDROL [Concomitant]
     Indication: PREMEDICATION
     Dosage: 120 MG, UNK
     Dates: start: 20130809, end: 20130809
  4. ZOPHREN                            /00955302/ [Concomitant]
     Dosage: 8 MG, UNKNOWN
     Route: 065
     Dates: start: 20130809, end: 20130809
  5. SOLUPRED                           /00016201/ [Concomitant]
     Dosage: 20 MG, TID
     Dates: start: 20130808, end: 20130812
  6. ACIDE FOLIQUE [Concomitant]
     Dosage: 1 DF, UNKNOWN
     Route: 065
     Dates: start: 201303, end: 20130831

REACTIONS (3)
  - Acute respiratory distress syndrome [Fatal]
  - Interstitial lung disease [Fatal]
  - Off label use [Recovered/Resolved]
